FAERS Safety Report 16765845 (Version 4)
Quarter: 2020Q1

REPORT INFORMATION
  Report Type: Report from Study
  Country: BR (occurrence: BR)
  Receive Date: 20190903
  Receipt Date: 20200217
  Transmission Date: 20200409
  Serious: Yes (Other)
  Sender: FDA-Public Use
  Company Number: BR-ROCHE-2398208

PATIENT
  Age: 34 Year
  Sex: Female
  Weight: 84 kg

DRUGS (6)
  1. LEVOTHYROXINE. [Concomitant]
     Active Substance: LEVOTHYROXINE
     Indication: HYPOTHYROIDISM
     Route: 065
     Dates: start: 20190423
  2. DIPYRONE [Concomitant]
     Active Substance: DIPYRONE
     Route: 065
     Dates: start: 20191004, end: 20191005
  3. VEMURAFENIB. [Suspect]
     Active Substance: VEMURAFENIB
     Indication: METASTATIC MALIGNANT MELANOMA
     Dosage: MOST RECENT DOSE OF VEMURAFENIB WAS ADMINISTERED ON 15/AUG/2019
     Route: 048
     Dates: start: 20171218
  4. ATEZOLIZUMAB. [Suspect]
     Active Substance: ATEZOLIZUMAB
     Indication: METASTATIC MALIGNANT MELANOMA
     Dosage: 1200 MG/20 ML ON DAYS 1 TO 15?ON 12/AUG/2019, TOTAL 264 ML VOLUME OF LAST BLINDED ATEZOLIZUMAB ADMIN
     Route: 042
     Dates: start: 20180115
  5. COBIMETINIB. [Suspect]
     Active Substance: COBIMETINIB
     Indication: METASTATIC MALIGNANT MELANOMA
     Dosage: THREE 20 MG TABLETS ONCE A DAY ON DAYS 1 TO 21?THE MOST RECENT DOSE 60 MG OF COBIMETINIB WAS ADMINIS
     Route: 048
     Dates: start: 20171218
  6. AVAMYS [Concomitant]
     Active Substance: FLUTICASONE FUROATE
     Indication: RHINITIS
     Route: 065
     Dates: start: 20181105

REACTIONS (1)
  - Papillary thyroid cancer [Recovered/Resolved]

NARRATIVE: CASE EVENT DATE: 20190816
